FAERS Safety Report 25951007 (Version 1)
Quarter: 2025Q4

REPORT INFORMATION
  Report Type: Spontaneous
  Country: US (occurrence: US)
  Receive Date: 20251023
  Receipt Date: 20251023
  Transmission Date: 20260117
  Serious: Yes (Death)
  Sender: RIGEL PHARMACEUTICALS
  Company Number: US-RIGEL Pharmaceuticals, INC-20250900128

PATIENT
  Age: 69 Year
  Sex: Female

DRUGS (2)
  1. GAVRETO [Suspect]
     Active Substance: PRALSETINIB
     Indication: Lung neoplasm malignant
     Dosage: 200 MG, QD
     Route: 048
  2. GAVRETO [Suspect]
     Active Substance: PRALSETINIB
     Dosage: 400 MG QD
     Route: 048
     Dates: start: 20250821

REACTIONS (2)
  - Death [Fatal]
  - Fatigue [Not Recovered/Not Resolved]

NARRATIVE: CASE EVENT DATE: 20250801
